FAERS Safety Report 5806060-5 (Version None)
Quarter: 2008Q3

REPORT INFORMATION
  Report Type: 
  Country: None (occurrence: None)
  Receive Date: 20080710
  Receipt Date: 20080702
  Transmission Date: 20090109
  Serious: Yes (Other)
  Sender: FDA-Public Use
  Company Number: CN-JNJFOC-20080701372

PATIENT
  Age: 3 Year
  Sex: Female

DRUGS (1)
  1. CHILDRENS TYLENOL PLUS COLD AND COUGH ORAL [Suspect]
     Indication: NASOPHARYNGITIS

REACTIONS (3)
  - DRUG HYPERSENSITIVITY [None]
  - PHARMACEUTICAL PRODUCT COUNTERFEIT [None]
  - RASH [None]
